FAERS Safety Report 14735186 (Version 10)
Quarter: 2020Q3

REPORT INFORMATION
  Report Type: Spontaneous
  Country: US (occurrence: US)
  Receive Date: 20180409
  Receipt Date: 20200807
  Transmission Date: 20201102
  Serious: Yes (Other)
  Sender: FDA-Public Use
  Company Number: PHEH2018US013563

PATIENT
  Age: 21 Year
  Sex: Female
  Weight: 72.5 kg

DRUGS (3)
  1. ZOFRAN [Suspect]
     Active Substance: ONDANSETRON HYDROCHLORIDE
     Indication: PRODUCT USED FOR UNKNOWN INDICATION
     Route: 048
  2. ONDANSETRON TEVA [Suspect]
     Active Substance: ONDANSETRON
     Indication: MORNING SICKNESS
     Dosage: UNK
     Route: 048
     Dates: start: 20130624, end: 20130902
  3. ZOFRAN [Suspect]
     Active Substance: ONDANSETRON HYDROCHLORIDE
     Indication: MORNING SICKNESS
     Dosage: 04 MG, Q6H
     Route: 042
     Dates: start: 20131202

REACTIONS (6)
  - Depression [Unknown]
  - Injury [Unknown]
  - Premature delivery [Unknown]
  - Maternal exposure during pregnancy [Unknown]
  - Emotional distress [Unknown]
  - Product use in unapproved indication [Unknown]

NARRATIVE: CASE EVENT DATE: 20131218
